FAERS Safety Report 25173245 (Version 1)
Quarter: 2025Q2

REPORT INFORMATION
  Report Type: Report from Study
  Country: US (occurrence: US)
  Receive Date: 20250408
  Receipt Date: 20250408
  Transmission Date: 20250716
  Serious: Yes (Other)
  Sender: CHIESI
  Company Number: US-CHIESI-2025CHF02270

PATIENT
  Sex: Female

DRUGS (1)
  1. VELMANASE ALFA [Suspect]
     Active Substance: VELMANASE ALFA
     Indication: Alpha-mannosidosis

REACTIONS (6)
  - Loss of personal independence in daily activities [Unknown]
  - Weight increased [Unknown]
  - Sleep disorder [Unknown]
  - Poor quality sleep [Unknown]
  - Restlessness [Unknown]
  - Eating disorder [Unknown]
